FAERS Safety Report 9787759 (Version 1)
Quarter: 2013Q4

REPORT INFORMATION
  Report Type: Spontaneous
  Country: US (occurrence: None)
  Receive Date: 20131227
  Receipt Date: 20131227
  Transmission Date: 20140711
  Serious: No
  Sender: FDA-Public Use
  Company Number: None

PATIENT
  Age: 64 Year
  Sex: Female
  Weight: 58.97 kg

DRUGS (1)
  1. FENTANYL TRANSDERMAL SYSTEM MALLINCKRODT [Suspect]
     Indication: PAIN
     Dosage: STRENGTH: FENTANYL 25 MCG/HR DIS ?QUANTITY: PACT H?FREQUENCY: 72 HR?HOW WAS IT TAKEN OR USED: ON SKIN?
     Route: 061
     Dates: start: 20131108

REACTIONS (1)
  - Unevaluable event [None]
